FAERS Safety Report 12714306 (Version 1)
Quarter: 2016Q3

REPORT INFORMATION
  Report Type: Spontaneous
  Country: US (occurrence: US)
  Receive Date: 20160905
  Receipt Date: 20160905
  Transmission Date: 20161109
  Serious: No
  Sender: FDA-Public Use
  Company Number: US-JAZZ-2016-US-008848

PATIENT
  Sex: Female

DRUGS (16)
  1. TRIAMTERENE AND HYDROCHLOROTHIAZIDE [Concomitant]
     Active Substance: HYDROCHLOROTHIAZIDE\TRIAMTERENE
  2. ATIVAN [Concomitant]
     Active Substance: LORAZEPAM
  3. XYREM [Suspect]
     Active Substance: SODIUM OXYBATE
     Indication: NARCOLEPSY
     Dosage: 3 G, BID
     Route: 048
     Dates: start: 200801, end: 200802
  4. XYREM [Suspect]
     Active Substance: SODIUM OXYBATE
     Dosage: 4.5 G, BID
     Route: 048
     Dates: start: 200803
  5. LAMOTRIGINE. [Concomitant]
     Active Substance: LAMOTRIGINE
  6. AZILECT [Concomitant]
     Active Substance: RASAGILINE MESYLATE
  7. SAPHRIS [Concomitant]
     Active Substance: ASENAPINE MALEATE
  8. PROTONIX [Concomitant]
     Active Substance: PANTOPRAZOLE SODIUM
  9. PEPCID [Concomitant]
     Active Substance: FAMOTIDINE
  10. LEVOTHYROXINE. [Concomitant]
     Active Substance: LEVOTHYROXINE
  11. VYVANSE [Concomitant]
     Active Substance: LISDEXAMFETAMINE DIMESYLATE
  12. SONATA [Concomitant]
     Active Substance: ZALEPLON
  13. XYREM [Suspect]
     Active Substance: SODIUM OXYBATE
     Dosage: 3.75 G, BID
     Route: 048
     Dates: start: 200802, end: 200803
  14. MYRBETRIQ [Concomitant]
     Active Substance: MIRABEGRON
  15. NEUPRO [Concomitant]
     Active Substance: ROTIGOTINE
  16. LISINOPRIL. [Concomitant]
     Active Substance: LISINOPRIL

REACTIONS (1)
  - Hypertonic bladder [Unknown]
